FAERS Safety Report 11783910 (Version 3)
Quarter: 2016Q3

REPORT INFORMATION
  Report Type: Report from Study
  Country: US (occurrence: US)
  Receive Date: 20151128
  Receipt Date: 20160721
  Transmission Date: 20161109
  Serious: Yes (Hospitalization, Disabling, Other)
  Sender: FDA-Public Use
  Company Number: US-ABBVIE-15K-163-1506380-00

PATIENT
  Sex: Male
  Weight: 81.72 kg

DRUGS (19)
  1. ATORVASTATIN [Concomitant]
     Active Substance: ATORVASTATIN
     Indication: BLOOD CHOLESTEROL INCREASED
  2. METHOTREXATE. [Concomitant]
     Active Substance: METHOTREXATE
     Indication: PRODUCT USED FOR UNKNOWN INDICATION
  3. HUMIRA [Suspect]
     Active Substance: ADALIMUMAB
     Indication: ANKYLOSING SPONDYLITIS
     Route: 058
     Dates: start: 2009, end: 2013
  4. LIPITOR [Concomitant]
     Active Substance: ATORVASTATIN CALCIUM
     Indication: PRODUCT USED FOR UNKNOWN INDICATION
  5. VITAMIN D [Concomitant]
     Active Substance: CHOLECALCIFEROL
     Indication: PRODUCT USED FOR UNKNOWN INDICATION
  6. FOLIC ACID. [Concomitant]
     Active Substance: FOLIC ACID
     Indication: PRODUCT USED FOR UNKNOWN INDICATION
  7. PREDNISONE. [Concomitant]
     Active Substance: PREDNISONE
     Indication: PRODUCT USED FOR UNKNOWN INDICATION
  8. OXYCODONE [Concomitant]
     Active Substance: OXYCODONE
     Indication: PAIN
  9. PREDNISONE. [Concomitant]
     Active Substance: PREDNISONE
     Indication: ANKYLOSING SPONDYLITIS
  10. NABUMETONE. [Concomitant]
     Active Substance: NABUMETONE
     Indication: INFLAMMATION
  11. MORPHINE [Concomitant]
     Active Substance: MORPHINE
     Indication: PAIN
  12. GABAPENTIN. [Concomitant]
     Active Substance: GABAPENTIN
     Indication: PRODUCT USED FOR UNKNOWN INDICATION
  13. NABUMETONE. [Concomitant]
     Active Substance: NABUMETONE
     Indication: ANKYLOSING SPONDYLITIS
  14. LIDOCAINE. [Concomitant]
     Active Substance: LIDOCAINE
     Indication: PAIN
     Route: 061
  15. HUMIRA [Suspect]
     Active Substance: ADALIMUMAB
     Route: 058
     Dates: start: 2013
  16. CHLORAZEPAM [Concomitant]
     Indication: PRODUCT USED FOR UNKNOWN INDICATION
  17. ROBAXIN [Concomitant]
     Active Substance: METHOCARBAMOL
     Indication: HYPOTONIA
  18. LEVOTHYROXINE. [Concomitant]
     Active Substance: LEVOTHYROXINE
     Indication: PRODUCT USED FOR UNKNOWN INDICATION
  19. ASPIRIN. [Concomitant]
     Active Substance: ASPIRIN
     Indication: PRODUCT USED FOR UNKNOWN INDICATION

REACTIONS (24)
  - Nerve injury [Recovered/Resolved]
  - Sepsis [Recovered/Resolved with Sequelae]
  - Infection [Recovered/Resolved]
  - Spinal column stenosis [Recovered/Resolved]
  - Peripheral swelling [Recovered/Resolved]
  - Localised infection [Recovered/Resolved]
  - Headache [Not Recovered/Not Resolved]
  - Pruritus [Not Recovered/Not Resolved]
  - Nerve injury [Recovered/Resolved with Sequelae]
  - Gangrene [Unknown]
  - Bacterial infection [Recovered/Resolved]
  - Nerve injury [Not Recovered/Not Resolved]
  - Cervical radiculopathy [Recovered/Resolved]
  - Skin injury [Recovered/Resolved with Sequelae]
  - Cellulitis [Recovered/Resolved with Sequelae]
  - Ankylosing spondylitis [Not Recovered/Not Resolved]
  - Blister [Recovered/Resolved]
  - Blister infected [Recovered/Resolved]
  - Hip arthroplasty [Recovered/Resolved]
  - Blood blister [Recovered/Resolved]
  - Wound infection [Recovered/Resolved with Sequelae]
  - Localised infection [Recovered/Resolved with Sequelae]
  - Spinal operation [Not Recovered/Not Resolved]
  - Musculoskeletal disorder [Recovered/Resolved with Sequelae]

NARRATIVE: CASE EVENT DATE: 2010
